FAERS Safety Report 8073570-2 (Version None)
Quarter: 2012Q1

REPORT INFORMATION
  Report Type: 
  Country: None (occurrence: None)
  Receive Date: 20120126
  Receipt Date: 20120123
  Transmission Date: 20120608
  Serious: Yes (Hospitalization)
  Sender: FDA-Public Use
  Company Number: US-SHIRE-ALL1-2011-04651

PATIENT
  Sex: Female
  Weight: 53.651 kg

DRUGS (5)
  1. FIORICET [Concomitant]
     Indication: ANAEMIA
     Dosage: UNK, UNKNOWN
     Route: 065
  2. FLEXERIL [Concomitant]
     Indication: PRODUCT USED FOR UNKNOWN INDICATION
     Dosage: UNK, UNKNOWN
     Route: 065
  3. IRON [Concomitant]
     Indication: SUPPLEMENTATION THERAPY
     Dosage: UNK UNK, 1X/DAY:QD
     Route: 048
  4. OMEPRAZOLE [Concomitant]
     Indication: GASTRITIS
     Dosage: UNK, UNKNOWN
     Route: 065
  5. PENTASA [Suspect]
     Indication: CROHN'S DISEASE
     Dosage: 1000 MG, 3X/DAY:TID (TWO 500 MG TABLETS)
     Route: 048
     Dates: start: 20111003, end: 20111001

REACTIONS (4)
  - INSOMNIA [None]
  - HEART RATE IRREGULAR [None]
  - OFF LABEL USE [None]
  - CHEST PAIN [None]
